FAERS Safety Report 6013390-3 (Version None)
Quarter: 2008Q4

REPORT INFORMATION
  Report Type: 
  Country: None (occurrence: None)
  Receive Date: 20081218
  Receipt Date: 20081218
  Transmission Date: 20090506
  Serious: Yes (Hospitalization)
  Sender: FDA-Public Use
  Company Number: None

PATIENT
  Age: 61 Year
  Sex: Male
  Weight: 113 kg

DRUGS (2)
  1. PIPERACILLIN AND TAZOBACTAM [Suspect]
     Indication: INFECTION
     Dates: start: 20081110, end: 20081113
  2. MICAFUNGIN [Suspect]
     Indication: FUNGAEMIA
     Dates: start: 20081111, end: 20081115

REACTIONS (1)
  - THROMBOCYTOPENIA [None]
